FAERS Safety Report 13489751 (Version 1)
Quarter: 2017Q2

REPORT INFORMATION
  Report Type: Spontaneous
  Country: US (occurrence: US)
  Receive Date: 20170427
  Receipt Date: 20170427
  Transmission Date: 20170830
  Serious: No
  Sender: FDA-Public Use
  Company Number: US-B.I. PHARMACEUTICALS,INC./RIDGEFIELD-2017-BI-023318

PATIENT
  Age: 83 Year
  Sex: Female

DRUGS (3)
  1. METOPROLOL. [Concomitant]
     Active Substance: METOPROLOL
     Indication: ATRIAL FIBRILLATION
     Dosage: 1/2 OF TABLET BID;  FORM STRENGTH: 25 MG; FORMULATION: TABLET
     Route: 048
     Dates: start: 20170418
  2. PANTOPRAZOLE [Concomitant]
     Active Substance: PANTOPRAZOLE
     Indication: GASTROOESOPHAGEAL REFLUX DISEASE
     Dosage: BID;  FORM STRENGTH: 40 MG; FORMULATION: TABLET
     Route: 048
     Dates: start: 2012
  3. PRADAXA [Suspect]
     Active Substance: DABIGATRAN ETEXILATE MESYLATE
     Indication: ATRIAL FIBRILLATION
     Dosage: BID;  FORM STRENGTH: 150 MG; FORMULATION: CAPSULE? ADMINISTRATION CORRECT? YES ?ACTION(S) TAKEN WITH
     Route: 048
     Dates: start: 20170418

REACTIONS (1)
  - Peripheral swelling [Recovered/Resolved]

NARRATIVE: CASE EVENT DATE: 20170422
